FAERS Safety Report 6635279-9 (Version None)
Quarter: 2010Q1

REPORT INFORMATION
  Report Type: 
  Country: None (occurrence: None)
  Receive Date: 20100315
  Receipt Date: 20100301
  Transmission Date: 20100710
  Serious: Yes (Death, Hospitalization)
  Sender: FDA-Public Use
  Company Number: CN-TYCO HEALTHCARE/MALLINCKRODT-T201000774

PATIENT
  Sex: Male
  Weight: 78 kg

DRUGS (4)
  1. EXALGO EXTENDED RELEASE [Suspect]
     Indication: CANCER PAIN
     Dosage: 8 MG, QD
     Route: 048
     Dates: start: 20091221, end: 20091231
  2. OXYCODONE HCL EXTENDED-RELEASE [Suspect]
     Dosage: 20 MG, BID
     Route: 048
     Dates: start: 20091221, end: 20091231
  3. PLACEBO [Suspect]
     Indication: CANCER PAIN
     Dosage: UNK, BID
     Route: 048
     Dates: start: 20091221, end: 20091231
  4. MORPHINE HYDROCHLORIDE [Suspect]
     Indication: CANCER PAIN
     Dosage: 5 MG, QD
     Route: 048
     Dates: start: 20091221, end: 20091231

REACTIONS (2)
  - DISEASE PROGRESSION [None]
  - JAUNDICE [None]
